FAERS Safety Report 24009798 (Version 1)
Quarter: 2024Q2

REPORT INFORMATION
  Report Type: Report from Study
  Country: CA (occurrence: None)
  Receive Date: 20240625
  Receipt Date: 20240625
  Transmission Date: 20240716
  Serious: Yes (Other)
  Sender: FDA-Public Use
  Company Number: 2024A142526

PATIENT
  Sex: Female

DRUGS (17)
  1. FASENRA [Suspect]
     Active Substance: BENRALIZUMAB
     Indication: Asthma
     Route: 058
     Dates: start: 20200128
  2. ATROVENT [Concomitant]
     Active Substance: IPRATROPIUM BROMIDE
  3. ATROVENT [Concomitant]
     Active Substance: IPRATROPIUM BROMIDE
     Dosage: 2PUFFS TID INHALATION
     Route: 055
  4. SYMBICORT [Concomitant]
     Active Substance: BUDESONIDE\FORMOTEROL FUMARATE DIHYDRATE
     Dosage: 200 MCG UNKNOWN
  5. SYMBICORT [Concomitant]
     Active Substance: BUDESONIDE\FORMOTEROL FUMARATE DIHYDRATE
     Dosage: 2PUFFS 2 X 3 PER DAY INHALATION UNKNOWN
     Route: 055
  6. PANTOPRAZOLE [Concomitant]
     Active Substance: PANTOPRAZOLE
     Dosage: 1 TAB BID 40 (MG) MILLIGRAMS
     Route: 048
  7. IRBESARTAN [Concomitant]
     Active Substance: IRBESARTAN
     Dosage: 1 TAB; QD 150 (MG) MILLIGRAMS ORAL
     Route: 048
  8. GABAPENTIN [Concomitant]
     Active Substance: GABAPENTIN
     Dosage: 1 CAP TID 300 (MG) MILLIGRAMS
     Route: 048
  9. OXYCODONE [Concomitant]
     Active Substance: OXYCODONE\OXYCODONE HYDROCHLORIDE
     Dosage: 5/325 TID (MG) MILLIGRAMS
     Route: 048
  10. ASPIRIN [Concomitant]
     Active Substance: ASPIRIN
     Dosage: ASPIRIN QD 81 (MG) MILLIGRAMS ORAL
     Route: 048
  11. CLOPIDOGREL [Concomitant]
     Active Substance: CLOPIDOGREL BISULFATE
     Dosage: QD 75 (MG) MILLIGRAMS ORAL;
     Route: 048
  12. FUROSEMIDE [Concomitant]
     Active Substance: FUROSEMIDE
     Dosage: 1 TAB 20 (MG) MILLIGRAMS ORAL
     Route: 048
  13. FERROUS FUMARATE [Concomitant]
     Active Substance: FERROUS FUMARATE
     Dosage: 1 TAB/ QD 300 (MG) MILLIGRAMS
     Route: 048
  14. SULFAMETHOXAZOLE\TRIMETHOPRIM [Concomitant]
     Active Substance: SULFAMETHOXAZOLE\TRIMETHOPRIM
     Dosage: 400/80 1 TAB/BID (MG) MILLIGRAMS
     Route: 048
  15. VENTOLIN [Concomitant]
     Active Substance: ALBUTEROL SULFATE
     Dosage: 2 PUFFS, UP TO 4 TIMES/DAY INHALATION
     Route: 055
  16. QVAR [Concomitant]
     Active Substance: BECLOMETHASONE DIPROPIONATE
  17. QVAR [Concomitant]
     Active Substance: BECLOMETHASONE DIPROPIONATE
     Dosage: 2 PUFFS BID INHALATION
     Route: 055

REACTIONS (1)
  - Hypotension [Not Recovered/Not Resolved]
